FAERS Safety Report 5489149-2 (Version None)
Quarter: 2007Q4

REPORT INFORMATION
  Report Type: 
  Country: None (occurrence: None)
  Receive Date: 20071016
  Receipt Date: 20071004
  Transmission Date: 20080405
  Serious: Yes (Hospitalization, Other)
  Sender: FDA-Public Use
  Company Number: 238524K07USA

PATIENT
  Age: 58 Year
  Sex: Female

DRUGS (2)
  1. REBIF [Suspect]
     Indication: MULTIPLE SCLEROSIS
     Dosage: 44 MCG, 3 IN 1 WEEKS, SUBCUTANEOUS
     Route: 058
     Dates: start: 20051010, end: 20070101
  2. IBUPROFEN [Suspect]
     Dates: end: 20061201

REACTIONS (8)
  - CONDITION AGGRAVATED [None]
  - DIABETES MELLITUS [None]
  - MALAISE [None]
  - OSTEOARTHRITIS [None]
  - PAIN [None]
  - RENAL INJURY [None]
  - STRESS [None]
  - WHITE BLOOD CELL COUNT INCREASED [None]
